FAERS Safety Report 7137593-X (Version None)
Quarter: 2010Q4

REPORT INFORMATION
  Report Type: 
  Country: None (occurrence: None)
  Receive Date: 20101206
  Receipt Date: 20101123
  Transmission Date: 20110411
  Serious: Yes (Hospitalization, Other)
  Sender: FDA-Public Use
  Company Number: DE-BAYER-201047388GPV

PATIENT
  Sex: Female

DRUGS (1)
  1. MIRENA [Suspect]
     Dosage: 20 A?G (DAILY DOSE), CONT, INTRA-UTERINE
     Route: 015
     Dates: start: 20060720

REACTIONS (1)
  - ENDOMETRIAL CANCER [None]
